FAERS Safety Report 24075262 (Version 1)
Quarter: 2024Q3

REPORT INFORMATION
  Report Type: Spontaneous
  Country: US (occurrence: US)
  Receive Date: 20240710
  Receipt Date: 20240710
  Transmission Date: 20241016
  Serious: No
  Sender: ACCORD
  Company Number: US-Accord-365782

PATIENT
  Sex: Female
  Weight: 56.7 kg

DRUGS (1)
  1. AMITRIPTYLINE HYDROCHLORIDE [Suspect]
     Active Substance: AMITRIPTYLINE HYDROCHLORIDE
     Indication: Bladder pain
     Dosage: ONCE DAILY
     Route: 048
     Dates: start: 202303

REACTIONS (3)
  - Gingival bleeding [Unknown]
  - Gingival disorder [Unknown]
  - Off label use [Unknown]
